FAERS Safety Report 7064707-2 (Version None)
Quarter: 2010Q4

REPORT INFORMATION
  Report Type: 
  Country: None (occurrence: None)
  Receive Date: 20101022
  Receipt Date: 20101022
  Transmission Date: 20110411
  Serious: Yes (Other)
  Sender: FDA-Public Use
  Company Number: None

PATIENT
  Age: 61 Year
  Sex: Female

DRUGS (1)
  1. ZOLPIDEM [Suspect]
     Indication: INSOMNIA
     Dosage: ONCE DAILY AT BEDTIME AS NEEDED
     Dates: start: 20100731

REACTIONS (2)
  - DRUG INEFFECTIVE [None]
  - INSOMNIA [None]
